FAERS Safety Report 7884671-3 (Version None)
Quarter: 2011Q4

REPORT INFORMATION
  Report Type: 
  Country: None (occurrence: None)
  Receive Date: 20111102
  Receipt Date: 20111031
  Transmission Date: 20120403
  Serious: Yes (Other)
  Sender: FDA-Public Use
  Company Number: FR-ABBOTT-11P-056-0731390-00

PATIENT
  Sex: Female
  Weight: 61 kg

DRUGS (3)
  1. HUMIRA [Suspect]
     Indication: CROHN'S DISEASE
     Route: 058
     Dates: start: 20100302, end: 20110101
  2. HUMIRA [Suspect]
     Dates: start: 20100101, end: 20100101
  3. HUMIRA [Suspect]
     Dates: start: 20100201, end: 20100201

REACTIONS (10)
  - DIFFUSE LARGE B-CELL LYMPHOMA [None]
  - MOUTH ULCERATION [None]
  - DECREASED APPETITE [None]
  - APHTHOUS STOMATITIS [None]
  - TINNITUS [None]
  - STOMATITIS [None]
  - PARAESTHESIA [None]
  - SWELLING FACE [None]
  - LYMPHOMA [None]
  - POST LUMBAR PUNCTURE SYNDROME [None]
